FAERS Safety Report 15378056 (Version 1)
Quarter: 2018Q3

REPORT INFORMATION
  Report Type: Spontaneous
  Country: US (occurrence: US)
  Receive Date: 20180906
  Receipt Date: 20180906
  Transmission Date: 20181010
  Serious: No
  Sender: FDA-Public Use
  Company Number: None

PATIENT
  Age: 82 Year
  Sex: Female
  Weight: 78.02 kg

DRUGS (13)
  1. VALSARTAN (GENERIC FOR DIOVAN TABS [Suspect]
     Active Substance: VALSARTAN
     Indication: HYPERTENSION
     Route: 048
     Dates: end: 20180816
  2. HCTZ [Concomitant]
     Active Substance: HYDROCHLOROTHIAZIDE
  3. ROSUVASTATIN. [Concomitant]
     Active Substance: ROSUVASTATIN
  4. SEPTRUM [Concomitant]
  5. LORATADIN(CLARATIN [Concomitant]
  6. (NEW OLMESARTANMEDOXOMIL [Concomitant]
  7. METOPROLOL. [Concomitant]
     Active Substance: METOPROLOL
  8. CALCIUM WITH D3 [Concomitant]
  9. PROTONIX [Concomitant]
     Active Substance: PANTOPRAZOLE SODIUM
  10. VITAMIN D3 [Concomitant]
     Active Substance: CHOLECALCIFEROL
  11. VITAMIN C [Concomitant]
     Active Substance: ASCORBIC ACID
  12. ACETOMINOPHEN [Concomitant]
     Active Substance: ACETAMINOPHEN
  13. EXEMESTANE (AROMSIN) [Concomitant]

REACTIONS (3)
  - Product use issue [None]
  - Product impurity [None]
  - Breast cancer [None]

NARRATIVE: CASE EVENT DATE: 20180815
